FAERS Safety Report 9882364 (Version 1)
Quarter: 2014Q1

REPORT INFORMATION
  Report Type: Spontaneous
  Country: US (occurrence: US)
  Receive Date: 20140207
  Receipt Date: 20140207
  Transmission Date: 20141002
  Serious: Yes (Other)
  Sender: FDA-Public Use
  Company Number: US-B.I. PHARMACEUTICALS,INC./RIDGEFIELD-2014-BI-04837GD

PATIENT
  Sex: Male

DRUGS (2)
  1. AFATINIB [Suspect]
     Indication: LUNG ADENOCARCINOMA
     Dosage: 40 MG
  2. CETUXIMAB [Suspect]
     Indication: LUNG ADENOCARCINOMA
     Dosage: 500 MG/ME2

REACTIONS (3)
  - Rash [Unknown]
  - Malignant neoplasm progression [Unknown]
  - Drug ineffective [Unknown]
